FAERS Safety Report 5597410-6 (Version None)
Quarter: 2008Q1

REPORT INFORMATION
  Report Type: 
  Country: None (occurrence: None)
  Receive Date: 20080121
  Receipt Date: 20080109
  Transmission Date: 20080703
  Serious: Yes (Death, Hospitalization, Other)
  Sender: FDA-Public Use
  Company Number: TR-JNJFOC-20080103302

PATIENT
  Age: 47 Year
  Sex: Female

DRUGS (4)
  1. INFLIXIMAB [Suspect]
     Indication: CROHN'S DISEASE
     Route: 042
  2. HEPARIN [Concomitant]
     Indication: THROMBOSIS
  3. WARFARIN SODIUM [Concomitant]
     Indication: THROMBOSIS
  4. CIPROFLOXACIN [Concomitant]

REACTIONS (2)
  - DISSEMINATED TUBERCULOSIS [None]
  - FUNGAL SEPSIS [None]
